FAERS Safety Report 8194037-7 (Version None)
Quarter: 2012Q1

REPORT INFORMATION
  Report Type: 
  Country: None (occurrence: None)
  Receive Date: 20120308
  Receipt Date: 20120306
  Transmission Date: 20120608
  Serious: Yes (Hospitalization, Disabling, Other)
  Sender: FDA-Public Use
  Company Number: US-MERCK-1103USA00989

PATIENT
  Age: 44 Year
  Sex: Male

DRUGS (15)
  1. FOSAMAX [Suspect]
     Route: 048
     Dates: start: 20050701, end: 20050801
  2. FOSAMAX [Suspect]
     Route: 048
     Dates: start: 20050801, end: 20100101
  3. FOSAMAX [Suspect]
     Indication: OSTEOPOROSIS
     Route: 065
  4. CORTICOSTEROIDS (UNSPECIFIED) [Concomitant]
     Route: 065
     Dates: start: 19961001
  5. FOSAMAX [Suspect]
     Route: 048
     Dates: start: 20050201, end: 20050601
  6. ALENDRONATE SODIUM [Suspect]
     Indication: OSTEOPOROSIS PROPHYLAXIS
     Route: 065
     Dates: start: 20080101
  7. ALENDRONATE SODIUM [Suspect]
     Indication: OSTEOPOROSIS
     Route: 065
     Dates: start: 20080101
  8. FOSAMAX [Suspect]
     Route: 048
     Dates: start: 20050701, end: 20050801
  9. FOSAMAX [Suspect]
     Indication: RENAL TRANSPLANT
     Route: 048
     Dates: start: 19980201, end: 20050101
  10. FOSAMAX [Suspect]
     Route: 048
     Dates: start: 20050201, end: 20050601
  11. MYCOPHENOLATE MOFETIL (CELLCEPT) [Concomitant]
     Route: 065
     Dates: start: 19960101
  12. FOSAMAX [Suspect]
     Indication: OSTEOPENIA
     Route: 048
     Dates: start: 19980201, end: 20050101
  13. FOSAMAX [Suspect]
     Route: 048
     Dates: start: 20050801, end: 20100101
  14. CYCLOSPORINE [Concomitant]
     Route: 065
     Dates: start: 19960101
  15. FOSAMAX [Suspect]
     Indication: OSTEOPOROSIS PROPHYLAXIS
     Route: 065

REACTIONS (14)
  - FEMORAL NECK FRACTURE [None]
  - FRACTURE [None]
  - ARTHRALGIA [None]
  - VITAMIN D DEFICIENCY [None]
  - FALL [None]
  - LOW TURNOVER OSTEOPATHY [None]
  - PROCEDURAL PAIN [None]
  - ASTHENIA [None]
  - BLOOD CHOLESTEROL INCREASED [None]
  - GOUT [None]
  - GAIT DISTURBANCE [None]
  - FOOT FRACTURE [None]
  - OFF LABEL USE [None]
  - HYPERCHOLESTEROLAEMIA [None]
